FAERS Safety Report 5281742-5 (Version None)
Quarter: 2007Q1

REPORT INFORMATION
  Report Type: 
  Country: None (occurrence: None)
  Receive Date: 20070330
  Receipt Date: 20070322
  Transmission Date: 20070707
  Serious: Yes (Hospitalization)
  Sender: FDA-Public Use
  Company Number: FR-GLAXOSMITHKLINE-B0459337A

PATIENT
  Age: 73 Year
  Sex: Male

DRUGS (13)
  1. ALKERAN [Suspect]
     Indication: MULTIPLE MYELOMA
     Route: 048
     Dates: start: 20060201
  2. THALIDOMIDE [Suspect]
     Indication: MULTIPLE MYELOMA
     Dosage: 100MG PER DAY
     Route: 048
     Dates: start: 20060301
  3. ZOMETA [Suspect]
     Indication: MULTIPLE MYELOMA
     Route: 042
     Dates: start: 20060201
  4. LOXEN [Concomitant]
  5. TENORDATE [Concomitant]
  6. PHYSIOTENS [Concomitant]
  7. LIPUR [Concomitant]
  8. GLUCOPHAGE [Concomitant]
  9. SERMION [Concomitant]
  10. QUESTRAN [Concomitant]
  11. NEXIUM [Concomitant]
  12. LASIX [Concomitant]
  13. SOLUPRED [Concomitant]

REACTIONS (5)
  - DYSPNOEA [None]
  - NEUTROPENIA [None]
  - PULMONARY HYPERTENSION [None]
  - RALES [None]
  - STOMATITIS [None]
